FAERS Safety Report 4277295-0 (Version None)
Quarter: 2004Q1

REPORT INFORMATION
  Report Type: 
  Country: None (occurrence: None)
  Receive Date: 20040121
  Receipt Date: 20040121
  Transmission Date: 20041129
  Serious: Yes (Hospitalization, Disabling)
  Sender: FDA-Public Use
  Company Number: None

PATIENT
  Age: 67 Year
  Sex: Male
  Weight: 99.7913 kg

DRUGS (2)
  1. LIPITOR [Suspect]
     Dosage: 1 AT BED
  2. CELEBREX [Suspect]
     Dosage: 1 TWICE

REACTIONS (7)
  - ABASIA [None]
  - ARTHRALGIA [None]
  - MUSCLE DISORDER [None]
  - MYALGIA [None]
  - NERVE INJURY [None]
  - OEDEMA PERIPHERAL [None]
  - PAIN IN EXTREMITY [None]
